FAERS Safety Report 9742574 (Version 1)
Quarter: 2013Q4

REPORT INFORMATION
  Report Type: Spontaneous
  Country: US (occurrence: US)
  Receive Date: 20131210
  Receipt Date: 20131210
  Transmission Date: 20140711
  Serious: No
  Sender: FDA-Public Use
  Company Number: US-GILEAD-2009-0024540

PATIENT
  Sex: Female
  Weight: 70.31 kg

DRUGS (12)
  1. LETAIRIS [Suspect]
     Indication: PULMONARY ARTERIAL HYPERTENSION
     Route: 048
     Dates: start: 20090806
  2. PROCRIT [Concomitant]
  3. COREG CR [Concomitant]
  4. ALPRAZOLAM [Concomitant]
  5. LASIX [Concomitant]
  6. PLAVIX [Concomitant]
  7. PROCARDIA XL [Concomitant]
  8. LIPITOR [Concomitant]
  9. LISINOPRIL [Concomitant]
  10. CENTRUM [Concomitant]
  11. POTASSIUM CHLORIDE [Concomitant]
  12. OXYGEN [Concomitant]

REACTIONS (1)
  - Diarrhoea [Recovered/Resolved]
